FAERS Safety Report 19329025 (Version 1)
Quarter: 2021Q2

REPORT INFORMATION
  Report Type: Spontaneous
  Country: NL (occurrence: NL)
  Receive Date: 20210528
  Receipt Date: 20210528
  Transmission Date: 20210717
  Serious: Yes (Life-Threatening, Other)
  Sender: FDA-Public Use
  Company Number: NL-TEVA-2021-NL-1914254

PATIENT
  Age: 28 Year
  Sex: Female
  Weight: 60 kg

DRUGS (3)
  1. LORAZEPAM TABLET 1MG / BRAND NAME NOT SPECIFIED [Concomitant]
     Dosage: 1 MG, THERAPY START AND END DATE: ASKU
  2. OLANZAPINE TABLET  5MG / BRAND NAME NOT SPECIFIED [Suspect]
     Active Substance: OLANZAPINE
     Indication: PSYCHOTIC DISORDER
     Dosage: 5 MILLIGRAM DAILY;
     Route: 065
     Dates: start: 201709, end: 20171015
  3. QUETIAPINE TABLET MGA 300MG / BRAND NAME NOT SPECIFIED [Suspect]
     Active Substance: QUETIAPINE
     Indication: PSYCHOTIC DISORDER
     Dosage: 300 MILLIGRAM DAILY;
     Route: 065
     Dates: start: 201710, end: 20171010

REACTIONS (2)
  - Suicidal ideation [Recovered/Resolved]
  - Suicide attempt [Recovered/Resolved]

NARRATIVE: CASE EVENT DATE: 20170922
